FAERS Safety Report 8765308 (Version 1)
Quarter: 2012Q4

REPORT INFORMATION
  Report Type: 
  Country: US (occurrence: US)
  Receive Date: 20120831
  Receipt Date: 20120831
  Transmission Date: 20130627
  Serious: Yes (Other)
  Sender: FDA-Public Use
  Company Number: US-JNJFOC-20120811144

PATIENT
  Sex: Female

DRUGS (1)
  1. ORTHOCLONE OKT3 [Suspect]
     Indication: LIVER TRANSPLANT
     Route: 065

REACTIONS (5)
  - Developmental delay [Unknown]
  - Obsessive-compulsive disorder [Unknown]
  - Hippocampal sclerosis [Unknown]
  - Status epilepticus [Unknown]
  - Complex partial seizures [Unknown]
